FAERS Safety Report 5267663-2 (Version None)
Quarter: 2007Q1

REPORT INFORMATION
  Report Type: 
  Country: None (occurrence: None)
  Receive Date: 20070316
  Receipt Date: 20070206
  Transmission Date: 20070707
  Serious: Yes (Death, Hospitalization)
  Sender: FDA-Public Use
  Company Number: US-PFIZER INC-2005103594

PATIENT
  Sex: Male
  Weight: 81.6 kg

DRUGS (3)
  1. SU-011,248 [Suspect]
     Indication: NEURILEMMOMA MALIGNANT
     Route: 048
     Dates: start: 20050609, end: 20050706
  2. MOTRIN [Concomitant]
     Route: 048
  3. PERCOCET [Concomitant]
     Route: 048

REACTIONS (3)
  - DEATH [None]
  - DYSPNOEA [None]
  - PLEURAL EFFUSION [None]
